FAERS Safety Report 7235728-1 (Version None)
Quarter: 2011Q1

REPORT INFORMATION
  Report Type: 
  Country: None (occurrence: None)
  Receive Date: 20110120
  Receipt Date: 20110113
  Transmission Date: 20110831
  Serious: Yes (Other)
  Sender: FDA-Public Use
  Company Number: PHHY2011JP03102

PATIENT
  Age: 35 Year
  Sex: Male

DRUGS (1)
  1. FAMVIR [Suspect]
     Indication: HERPES ZOSTER
     Dosage: 500 MG, UNK
     Route: 048
     Dates: start: 20110105, end: 20110105

REACTIONS (3)
  - VOMITING [None]
  - NAUSEA [None]
  - WHITE BLOOD CELL COUNT INCREASED [None]
